FAERS Safety Report 10232659 (Version 1)
Quarter: 2014Q2

REPORT INFORMATION
  Report Type: Spontaneous
  Country: US (occurrence: US)
  Receive Date: 20140612
  Receipt Date: 20140612
  Transmission Date: 20141212
  Serious: Yes (Hospitalization, Other)
  Sender: FDA-Public Use
  Company Number: US-JNJFOC-20140518344

PATIENT
  Sex: 0

DRUGS (2)
  1. PALIPERIDONE PALMITATE [Suspect]
     Indication: SCHIZOAFFECTIVE DISORDER
     Dosage: 39MG, 78 MG, 117 MG, 156 MG,AND 234 MG
     Route: 030
  2. HALOPERIDOL DECANOATE [Suspect]
     Indication: SCHIZOAFFECTIVE DISORDER
     Dosage: 50 MG/ML OR 100 MG/ML
     Route: 030

REACTIONS (27)
  - Adverse event [Unknown]
  - Suicidal ideation [Unknown]
  - Drug ineffective [Unknown]
  - Syncope [Unknown]
  - Tardive dyskinesia [Unknown]
  - Parkinsonism [Unknown]
  - Homicidal ideation [Unknown]
  - Akathisia [Unknown]
  - Adverse event [Unknown]
  - Insomnia [Unknown]
  - Hypersomnia [Unknown]
  - Salivary hypersecretion [Unknown]
  - Incontinence [Unknown]
  - Menstruation irregular [Unknown]
  - Gynaecomastia [Unknown]
  - Galactorrhoea [Unknown]
  - Weight increased [Unknown]
  - Weight decreased [Unknown]
  - Blood prolactin increased [Unknown]
  - Somnolence [Unknown]
  - Dry mouth [Unknown]
  - Increased appetite [Unknown]
  - Constipation [Unknown]
  - Nocturia [Unknown]
  - Urinary hesitation [Unknown]
  - Sexual dysfunction [Unknown]
  - Treatment noncompliance [Unknown]
